FAERS Safety Report 6194894-X (Version None)
Quarter: 2009Q2

REPORT INFORMATION
  Report Type: 
  Country: None (occurrence: None)
  Receive Date: 20090519
  Receipt Date: 20090505
  Transmission Date: 20091009
  Serious: Yes (Other)
  Sender: FDA-Public Use
  Company Number: BR-TEVA-195095ISR

PATIENT
  Sex: Female

DRUGS (4)
  1. BUDESONIDE [Suspect]
     Route: 065
  2. DEFLAZACORT [Concomitant]
  3. BUDESONIDE W/FORMOTEROL FUMARATE [Concomitant]
  4. DIURETICS [Concomitant]

REACTIONS (3)
  - HYPERTENSION [None]
  - OEDEMA PERIPHERAL [None]
  - SWELLING FACE [None]
